FAERS Safety Report 10768708 (Version 3)
Quarter: 2015Q2

REPORT INFORMATION
  Report Type: Spontaneous
  Country: KR (occurrence: None)
  Receive Date: 20150204
  Receipt Date: 20150424
  Transmission Date: 20150821
  Serious: Yes (Other)
  Sender: FDA-Public Use
  Company Number: 2015-10507

PATIENT
  Age: 81 Year
  Sex: Female

DRUGS (1)
  1. EYLEA [Suspect]
     Active Substance: AFLIBERCEPT
     Indication: AGE-RELATED MACULAR DEGENERATION
     Dosage: 2 MG, ON RIGHT EYE, INTRAOCULAR?
     Route: 031
     Dates: start: 201405, end: 201405

REACTIONS (8)
  - Lacrimation increased [None]
  - Discomfort [None]
  - Ocular discomfort [None]
  - Eye pain [None]
  - Vitreous floaters [None]
  - Visual impairment [None]
  - Intraocular pressure increased [None]
  - Age-related macular degeneration [None]

NARRATIVE: CASE EVENT DATE: 2015
